FAERS Safety Report 12622554 (Version 2)
Quarter: 2016Q4

REPORT INFORMATION
  Report Type: Report from Study
  Country: DE (occurrence: DE)
  Receive Date: 20160804
  Receipt Date: 20161215
  Transmission Date: 20170207
  Serious: Yes (Hospitalization, Other)
  Sender: FDA-Public Use
  Company Number: PHHY2016DE104402

PATIENT
  Sex: Male

DRUGS (1)
  1. EXJADE [Suspect]
     Active Substance: DEFERASIROX
     Indication: MYELODYSPLASTIC SYNDROME
     Dosage: UNK
     Route: 065
     Dates: start: 20151107

REACTIONS (4)
  - Disease progression [Unknown]
  - Myelodysplastic syndrome [Unknown]
  - Pneumonia [Unknown]
  - Disease complication [Unknown]

NARRATIVE: CASE EVENT DATE: 20161114
